FAERS Safety Report 9678273 (Version 2)
Quarter: 2013Q4

REPORT INFORMATION
  Report Type: Spontaneous
  Country: CY (occurrence: CY)
  Receive Date: 20131108
  Receipt Date: 20131108
  Transmission Date: 20140711
  Serious: Yes (Hospitalization)
  Sender: FDA-Public Use
  Company Number: CY-OPTIMER-20130381

PATIENT
  Age: 22 Year
  Sex: Male
  Weight: 60 kg

DRUGS (8)
  1. DIFICLIR [Suspect]
     Indication: CLOSTRIDIAL INFECTION
     Dosage: 200 MG, BID
     Route: 048
  2. DIFICLIR [Suspect]
     Dosage: 200 MG, BID
     Route: 048
  3. FLAGYL [Concomitant]
     Indication: DIARRHOEA
     Dosage: UNK
     Route: 065
  4. MERONEM [Concomitant]
     Indication: BACTERIAL INFECTION
     Dosage: UNK
     Route: 042
  5. ZITHROMAX [Concomitant]
     Indication: BACTERIAL INFECTION
     Dosage: 500 MG, QD
     Route: 065
  6. VANCOMYCIN [Concomitant]
     Indication: CAMPYLOBACTER INFECTION
     Dosage: UNK
     Route: 048
     Dates: start: 20130328, end: 20130410
  7. RIFAXIMIN [Concomitant]
     Dosage: UNK
     Dates: start: 20130513
  8. RIFAXIMIN [Concomitant]
     Dosage: UNK

REACTIONS (5)
  - Drug ineffective [Unknown]
  - Diarrhoea [Unknown]
  - Mucous stools [Unknown]
  - Weight decreased [Unknown]
  - Pyrexia [Unknown]
